FAERS Safety Report 18451730 (Version 1)
Quarter: 2020Q4

REPORT INFORMATION
  Report Type: Spontaneous
  Country: US (occurrence: US)
  Receive Date: 20201030
  Receipt Date: 20201030
  Transmission Date: 20210114
  Serious: Yes (Hospitalization)
  Sender: FDA-Public Use
  Company Number: None

PATIENT
  Sex: Female

DRUGS (13)
  1. VITAMIN D3 [Concomitant]
     Active Substance: CHOLECALCIFEROL
  2. PLEGRIDY [Suspect]
     Active Substance: PEGINTERFERON BETA-1A
     Indication: ASTHMA
     Route: 058
     Dates: start: 20180104
  3. PENTOXIFYLLI [Concomitant]
  4. ASPIRIN. [Concomitant]
     Active Substance: ASPIRIN
  5. MAGNESIUM [Concomitant]
     Active Substance: MAGNESIUM
  6. SPIRONOLACT [Concomitant]
     Active Substance: SPIRONOLACTONE
  7. DANLROLENE [Concomitant]
  8. FLUTICASONE. [Concomitant]
     Active Substance: FLUTICASONE
  9. KLOR~CON SPR [Concomitant]
  10. FISH OIL [Concomitant]
     Active Substance: FISH OIL
  11. ATORVASTATJN [Concomitant]
  12. CALCIUM 600 [Concomitant]
     Active Substance: CALCIUM
  13. TIZANIDINE. [Concomitant]
     Active Substance: TIZANIDINE

REACTIONS (2)
  - Colon operation [None]
  - Gallbladder operation [None]
